FAERS Safety Report 16709409 (Version 7)
Quarter: 2020Q1

REPORT INFORMATION
  Report Type: Report from Study
  Country: US (occurrence: US)
  Receive Date: 20190816
  Receipt Date: 20200228
  Transmission Date: 20200409
  Serious: Yes (Hospitalization, Other)
  Sender: FDA-Public Use
  Company Number: PHEH2019US033966

PATIENT
  Sex: Female
  Weight: 76.83 kg

DRUGS (5)
  1. ADCIRCA [Concomitant]
     Active Substance: TADALAFIL
     Indication: PULMONARY ARTERIAL HYPERTENSION
     Route: 065
  2. TREPROSTINIL. [Suspect]
     Active Substance: TREPROSTINIL
     Indication: PULMONARY ARTERIAL HYPERTENSION
     Dosage: 107 OT (117 NG/KG/MIN), CONTINUOUS
     Route: 042
     Dates: start: 20190716
  3. TREPROSTINIL. [Suspect]
     Active Substance: TREPROSTINIL
     Dosage: 115 OT (NG/KG/MIN), CONTINUOUS
     Route: 042
  4. OPSUMIT [Concomitant]
     Active Substance: MACITENTAN
     Indication: PULMONARY ARTERIAL HYPERTENSION
     Route: 065
  5. GABAPENTIN. [Concomitant]
     Active Substance: GABAPENTIN
     Indication: PRODUCT USED FOR UNKNOWN INDICATION
     Route: 065

REACTIONS (14)
  - Diarrhoea [Unknown]
  - Rash [Recovered/Resolved]
  - Pruritus [Unknown]
  - Nasopharyngitis [Unknown]
  - Urticaria [Unknown]
  - Infusion site urticaria [Unknown]
  - Weight decreased [Unknown]
  - Hypotension [Unknown]
  - Lower respiratory tract infection [Unknown]
  - Back pain [Unknown]
  - Abdominal discomfort [Unknown]
  - Pneumonia [Not Recovered/Not Resolved]
  - Nasal congestion [Unknown]
  - Headache [Unknown]
